FAERS Safety Report 13920551 (Version 1)
Quarter: 2017Q3

REPORT INFORMATION
  Report Type: Report from Study
  Country: GT (occurrence: GT)
  Receive Date: 20170830
  Receipt Date: 20170830
  Transmission Date: 20171127
  Serious: Yes (Other)
  Sender: FDA-Public Use
  Company Number: PHHY2017GT126049

PATIENT
  Age: 68 Year
  Sex: Female

DRUGS (1)
  1. EXFORGE HCT [Suspect]
     Active Substance: AMLODIPINE BESYLATE\HYDROCHLOROTHIAZIDE\VALSARTAN
     Indication: PRODUCT USED FOR UNKNOWN INDICATION
     Dosage: (AMLODIPINE 5 MG/ HYDROCHLOROTHIAZIDE 12.5 MG/ VALSARTAN 160 MG)
     Route: 065

REACTIONS (5)
  - Influenza [Unknown]
  - Blood creatinine decreased [Unknown]
  - Diabetes mellitus [Unknown]
  - Memory impairment [Unknown]
  - Oropharyngeal pain [Unknown]
